FAERS Safety Report 12240156 (Version 1)
Quarter: 2016Q2

REPORT INFORMATION
  Report Type: Spontaneous
  Country: US (occurrence: US)
  Receive Date: 20160405
  Receipt Date: 20160405
  Transmission Date: 20160815
  Serious: Yes (Other)
  Sender: FDA-Public Use
  Company Number: US-PFIZER INC-2016188634

PATIENT
  Age: 53 Year
  Sex: Female
  Weight: 81.65 kg

DRUGS (6)
  1. PRED FORTE [Concomitant]
     Active Substance: PREDNISOLONE ACETATE
     Indication: CATARACT
     Dosage: 1 DROP IN BOTH EYES FOUR TIMES A DAY FOR ONE MONTH, THEN 1 DROP IN LEFT EYE TWICE A DAY
     Route: 047
     Dates: start: 20160220
  2. KETOROLAC [Concomitant]
     Active Substance: KETOROLAC\KETOROLAC TROMETHAMINE
     Indication: CATARACT
     Dosage: 1 DROP EACH EYE TWICE A DAY
     Route: 047
     Dates: start: 20160220, end: 201603
  3. XELJANZ [Suspect]
     Active Substance: TOFACITINIB CITRATE
     Indication: RHEUMATOID ARTHRITIS
     Dosage: 5 MG, 2X/DAY
     Route: 048
     Dates: start: 201507
  4. AMBIEN [Concomitant]
     Active Substance: ZOLPIDEM TARTRATE
     Indication: SLEEP DISORDER
     Dosage: 10MG CAPLET AT BEDTIME
     Route: 048
  5. NEXIUM [Concomitant]
     Active Substance: ESOMEPRAZOLE MAGNESIUM
     Indication: GASTROOESOPHAGEAL REFLUX DISEASE
     Dosage: 40MG CAPSULES ONE A DAY
     Route: 048
  6. SULFASALAZINE. [Concomitant]
     Active Substance: SULFASALAZINE
     Indication: RHEUMATOID ARTHRITIS
     Dosage: 2500MG CAPLETS A DAY
     Route: 048

REACTIONS (4)
  - Cataract [Recovered/Resolved with Sequelae]
  - Dry eye [Not Recovered/Not Resolved]
  - Impaired healing [Recovered/Resolved with Sequelae]
  - Vision blurred [Not Recovered/Not Resolved]

NARRATIVE: CASE EVENT DATE: 201602
